FAERS Safety Report 5782550-9 (Version None)
Quarter: 2008Q2

REPORT INFORMATION
  Report Type: 
  Country: None (occurrence: None)
  Receive Date: 20080623
  Receipt Date: 20080611
  Transmission Date: 20081010
  Serious: Yes (Hospitalization)
  Sender: FDA-Public Use
  Company Number: CA-PFIZER INC-2008049371

PATIENT
  Age: 60 Year
  Sex: Female
  Weight: 90.9 kg

DRUGS (11)
  1. CHANTIX [Suspect]
  2. CLONAZEPAM [Concomitant]
  3. HYDROCHLOROTHIAZIDE [Concomitant]
  4. HYDROXYZINE [Concomitant]
  5. SERTRALINE [Concomitant]
  6. ATIVAN [Concomitant]
     Route: 060
  7. IBUROFEN [Concomitant]
  8. TERBINAFINE HCL [Concomitant]
  9. OXYCONTIN [Concomitant]
  10. PREVACID [Concomitant]
  11. FENTANYL-100 [Concomitant]

REACTIONS (8)
  - ANXIETY [None]
  - BLOOD POTASSIUM DECREASED [None]
  - DIZZINESS [None]
  - MALAISE [None]
  - NAUSEA [None]
  - PAIN [None]
  - PALPITATIONS [None]
  - PANIC ATTACK [None]
